FAERS Safety Report 4294714-4 (Version None)
Quarter: 2004Q1

REPORT INFORMATION
  Report Type: 
  Country: None (occurrence: None)
  Receive Date: 20040211
  Receipt Date: 20040130
  Transmission Date: 20041129
  Serious: Yes (Hospitalization)
  Sender: FDA-Public Use
  Company Number: DE-JNJFOC-20040200762

PATIENT
  Age: 69 Year
  Sex: Male

DRUGS (1)
  1. REMINYL [Suspect]
     Indication: DEMENTIA
     Dosage: 8 MG, 2 IN 1 DAY, ORAL
     Route: 048
     Dates: start: 20010701

REACTIONS (5)
  - HEPATIC CIRRHOSIS [None]
  - PANCREATIC CYST [None]
  - PANCREATITIS NECROTISING [None]
  - PORTAL VEIN THROMBOSIS [None]
  - VARICES OESOPHAGEAL [None]
